FAERS Safety Report 6884323-2 (Version None)
Quarter: 2010Q3

REPORT INFORMATION
  Report Type: 
  Country: None (occurrence: None)
  Receive Date: 20100729
  Receipt Date: 20070627
  Transmission Date: 20110219
  Serious: No
  Sender: FDA-Public Use
  Company Number: US-PFIZER INC-2007052748

PATIENT
  Sex: Female

DRUGS (1)
  1. CELEBREX [Suspect]

REACTIONS (5)
  - ANXIETY [None]
  - BLOOD BLISTER [None]
  - FEELING JITTERY [None]
  - NERVOUSNESS [None]
  - PRURITUS [None]
